FAERS Safety Report 5226472-0 (Version None)
Quarter: 2007Q1

REPORT INFORMATION
  Report Type: 
  Country: None (occurrence: None)
  Receive Date: 20070201
  Receipt Date: 20070122
  Transmission Date: 20070707
  Serious: Yes (Other)
  Sender: FDA-Public Use
  Company Number: 2007AP00622

PATIENT
  Age: 17 Year
  Sex: Male

DRUGS (1)
  1. ZOMIG [Suspect]
     Indication: HEADACHE
     Dosage: 2 TABLETS TWICE DAILY
     Route: 048
     Dates: start: 20070117

REACTIONS (1)
  - DEPRESSED MOOD [None]
